FAERS Safety Report 10286915 (Version 2)
Quarter: 2014Q3

REPORT INFORMATION
  Report Type: Spontaneous
  Country: US (occurrence: None)
  Receive Date: 20140707
  Receipt Date: 20140725
  Transmission Date: 20150326
  Serious: Yes (Other)
  Sender: FDA-Public Use
  Company Number: 2014-US-008004

PATIENT
  Age: 19 Year
  Sex: Male

DRUGS (6)
  1. VYVANSE [Concomitant]
     Active Substance: LISDEXAMFETAMINE DIMESYLATE
  2. ADDERALL [Suspect]
     Active Substance: AMPHETAMINE ASPARTATE\AMPHETAMINE SULFATE\DEXTROAMPHETAMINE SACCHARATE\DEXTROAMPHETAMINE SULFATE
     Indication: PRODUCT USED FOR UNKNOWN INDICATION
  3. GABAPENTIN (GABAPENTIN) [Concomitant]
     Active Substance: GABAPENTIN
  4. KLONOPIN (CLONAZEPAM) [Concomitant]
  5. XYREM [Suspect]
     Active Substance: SODIUM OXYBATE
     Indication: NARCOLEPSY
     Route: 048
     Dates: start: 201211, end: 2012
  6. FIORICET (BUTALBITAL, CAFFEINE, PARACETAMOL) [Concomitant]

REACTIONS (14)
  - Fall [None]
  - Neck pain [None]
  - Head injury [None]
  - Hypotension [None]
  - Condition aggravated [None]
  - Insomnia [None]
  - Nausea [None]
  - Drug level above therapeutic [None]
  - Concussion [None]
  - Migraine [None]
  - Syncope [None]
  - Seborrhoea [None]
  - Aphagia [None]
  - Wrong technique in drug usage process [None]

NARRATIVE: CASE EVENT DATE: 201211
